FAERS Safety Report 12732376 (Version 2)
Quarter: 2017Q1

REPORT INFORMATION
  Report Type: Report from Study
  Country: CR (occurrence: CR)
  Receive Date: 20160912
  Receipt Date: 20170111
  Transmission Date: 20170428
  Serious: Yes (Other)
  Sender: FDA-Public Use
  Company Number: PHHY2016CR124013

PATIENT
  Age: 86 Year
  Sex: Male

DRUGS (3)
  1. EXELON PATCH [Suspect]
     Active Substance: RIVASTIGMINE
     Dosage: 13.3 MG, UNK PATCH 15 (CM2)
     Route: 062
  2. DIOVAN [Suspect]
     Active Substance: VALSARTAN
     Indication: PRODUCT USED FOR UNKNOWN INDICATION
     Dosage: 80 MG, UNK
     Route: 065
  3. EXELON PATCH [Suspect]
     Active Substance: RIVASTIGMINE
     Indication: PRODUCT USED FOR UNKNOWN INDICATION
     Dosage: 9.5 MG, QD PATCH 10 (CM2)
     Route: 062

REACTIONS (3)
  - Impaired reasoning [Unknown]
  - Senile dementia [Unknown]
  - Cerebrovascular accident [Unknown]
